FAERS Safety Report 19916342 (Version 1)
Quarter: 2021Q4

REPORT INFORMATION
  Report Type: Spontaneous
  Country: SE (occurrence: SE)
  Receive Date: 20211004
  Receipt Date: 20211004
  Transmission Date: 20220303
  Serious: Yes (Disabling, Other)
  Sender: FDA-Public Use
  Company Number: SE-DSJP-DSU-2021-132626AA

PATIENT
  Age: 77 Year
  Sex: Female
  Weight: 63 kg

DRUGS (3)
  1. COLESEVELAM HYDROCHLORIDE [Suspect]
     Active Substance: COLESEVELAM HYDROCHLORIDE
     Indication: Bile acid malabsorption
     Dosage: 2500 MG, QD
     Route: 048
     Dates: start: 20201027, end: 20210525
  2. COLESEVELAM HYDROCHLORIDE [Suspect]
     Active Substance: COLESEVELAM HYDROCHLORIDE
     Indication: Bile duct stenosis
  3. CYCLOSPORINE [Suspect]
     Active Substance: CYCLOSPORINE
     Indication: Pyoderma gangrenosum
     Dosage: 100 MG, QD
     Route: 048
     Dates: start: 20201126, end: 20210114

REACTIONS (2)
  - Malignant melanoma [Recovered/Resolved]
  - Malignant neoplasm of eye [Recovered/Resolved]

NARRATIVE: CASE EVENT DATE: 20210317
